FAERS Safety Report 7703312-9 (Version None)
Quarter: 2011Q3

REPORT INFORMATION
  Report Type: 
  Country: None (occurrence: None)
  Receive Date: 20110823
  Receipt Date: 20110809
  Transmission Date: 20111222
  Serious: Yes (Other)
  Sender: FDA-Public Use
  Company Number: ES-ELI_LILLY_AND_COMPANY-ES201108003083

PATIENT
  Sex: Female
  Weight: 65 kg

DRUGS (8)
  1. AUGMENTINE                         /00852501/ [Concomitant]
     Indication: CELLULITIS
     Dosage: 3 DF, QD
     Route: 048
     Dates: start: 20110803
  2. ACETAMINOPHEN [Concomitant]
     Indication: PAIN
     Dosage: 3 DF, QD
     Route: 048
  3. NOLOTIL [Concomitant]
     Dosage: 3 DF, QD
     Route: 048
  4. DIAZEPAN [Concomitant]
     Indication: INSOMNIA
     Dosage: 1 DF, QD
     Route: 048
  5. ENOXAPARIN SODIUM [Concomitant]
     Indication: ANTICOAGULANT THERAPY
     Dosage: 1 DF, BID
     Route: 058
     Dates: start: 20110803
  6. NORVASC [Concomitant]
     Indication: HYPERTENSION
     Dosage: 1 DF, QD
     Route: 048
     Dates: start: 19900101
  7. FORTEO [Suspect]
     Indication: OSTEOPOROSIS
     Dosage: 20 UG, QD
     Route: 058
     Dates: start: 20110716
  8. OMEPRAZOLE [Concomitant]
     Indication: ABDOMINAL DISCOMFORT
     Dosage: 1 DF, QD
     Route: 048

REACTIONS (1)
  - DEEP VEIN THROMBOSIS [None]
